FAERS Safety Report 4575011-6 (Version None)
Quarter: 2005Q1

REPORT INFORMATION
  Report Type: 
  Country: None (occurrence: None)
  Receive Date: 20050208
  Receipt Date: 20050126
  Transmission Date: 20050727
  Serious: Yes (Other)
  Sender: FDA-Public Use
  Company Number: JP-ROCHE-394489

PATIENT
  Age: 20 Year
  Sex: Female

DRUGS (4)
  1. CELLCEPT [Suspect]
     Route: 048
  2. CYCLOSPORINE [Suspect]
     Route: 048
  3. PREDNISOLONE [Suspect]
     Route: 048
  4. INSULIN [Concomitant]

REACTIONS (11)
  - BIOPSY KIDNEY ABNORMAL [None]
  - COMPLICATIONS OF TRANSPLANTED KIDNEY [None]
  - GLUCOSE TOLERANCE IMPAIRED [None]
  - HAEMODIALYSIS [None]
  - HEPATIC FUNCTION ABNORMAL [None]
  - POST PROCEDURAL COMPLICATION [None]
  - PYREXIA [None]
  - SEPSIS [None]
  - TUBULOINTERSTITIAL NEPHRITIS [None]
  - URINARY TRACT INFECTION [None]
  - UROSEPSIS [None]
